FAERS Safety Report 21999009 (Version 1)
Quarter: 2023Q1

REPORT INFORMATION
  Report Type: Spontaneous
  Country: US (occurrence: None)
  Receive Date: 20230215
  Receipt Date: 20230215
  Transmission Date: 20230417
  Serious: Yes (Hospitalization)
  Sender: FDA-Public Use
  Company Number: None

PATIENT
  Sex: Male

DRUGS (18)
  1. TOBRAMYCIN [Suspect]
     Active Substance: TOBRAMYCIN
     Indication: Cystic fibrosis
     Dosage: 300 MG/5ML INHALATION??TAKE 1 AMPULE VIA NEBULIZER TWICE DAILY FOR 28 DAYS ON THEN 28 DAYS OFF
     Route: 055
     Dates: start: 20170818
  2. ALBUTEROL AER HFA [Concomitant]
  3. ALBUTEROL [Concomitant]
     Active Substance: ALBUTEROL
  4. CREON [Concomitant]
     Active Substance: PANCRELIPASE AMYLASE\PANCRELIPASE LIPASE\PANCRELIPASE PROTEASE
  5. FENTANYL DIS [Concomitant]
  6. HYDROMORPHONE [Concomitant]
     Active Substance: HYDROMORPHONE
  7. METHYLPREDNISOLONE [Concomitant]
     Active Substance: METHYLPREDNISOLONE
  8. MONTELUKAST [Concomitant]
     Active Substance: MONTELUKAST SODIUM
  9. MORPHINE SUL ER [Concomitant]
  10. NALOXONE [Concomitant]
     Active Substance: NALOXONE
  11. OXYCODONE [Concomitant]
     Active Substance: OXYCODONE
  12. PERTZYE [Concomitant]
     Active Substance: PANCRELIPASE AMYLASE\PANCRELIPASE LIPASE\PANCRELIPASE PROTEASE
  13. PREGABALIN [Concomitant]
     Active Substance: PREGABALIN
  14. PULMOZYME SOL [Concomitant]
  15. SODIUM CHLORIDE [Concomitant]
     Active Substance: SODIUM CHLORIDE
  16. TRIKAFTA [Concomitant]
     Active Substance: ELEXACAFTOR\IVACAFTOR\TEZACAFTOR
  17. URSODIOL [Concomitant]
     Active Substance: URSODIOL
  18. VITAMIN D [Concomitant]
     Active Substance: VITAMIN D NOS

REACTIONS (7)
  - COVID-19 [None]
  - Dyspnoea [None]
  - Nasal inflammation [None]
  - Nasal congestion [None]
  - Productive cough [None]
  - Wheezing [None]
  - Gastrointestinal disorder [None]
